FAERS Safety Report 20908907 (Version 2)
Quarter: 2022Q4

REPORT INFORMATION
  Report Type: Spontaneous
  Country: US (occurrence: US)
  Receive Date: 20220603
  Receipt Date: 20221004
  Transmission Date: 20230113
  Serious: Yes (Other)
  Sender: FDA-Public Use
  Company Number: US-CELLTRION INC.-2022US008077

PATIENT

DRUGS (2)
  1. TRUXIMA [Suspect]
     Active Substance: RITUXIMAB-ABBS
     Indication: Mantle cell lymphoma
     Dosage: 1000 MILLIGRAM (NO FREQUENCY WAS LISTED)
     Dates: start: 20220317
  2. TRUXIMA [Suspect]
     Active Substance: RITUXIMAB-ABBS
     Dosage: 1000 MILLIGRAM EVERY 8 WEEKS
     Dates: start: 20220512

REACTIONS (2)
  - Mantle cell lymphoma [Unknown]
  - Off label use [Unknown]
